FAERS Safety Report 9937174 (Version 1)
Quarter: 2014Q1

REPORT INFORMATION
  Report Type: Spontaneous
  Country: GB (occurrence: GB)
  Receive Date: 20140301
  Receipt Date: 20140301
  Transmission Date: 20141002
  Serious: Yes (Disabling)
  Sender: FDA-Public Use
  Company Number: GB-ASTRAZENECA-2014SE12836

PATIENT
  Age: 45 Year
  Sex: Female
  Weight: 65 kg

DRUGS (10)
  1. CRESTOR [Suspect]
     Indication: ARTERIOSCLEROSIS
     Route: 048
     Dates: start: 20140128, end: 20140131
  2. CRESTOR [Suspect]
     Indication: HYPERCHOLESTEROLAEMIA
     Route: 048
     Dates: start: 20140128, end: 20140131
  3. AMLODIPINE [Concomitant]
  4. CANDESARTAN [Concomitant]
  5. DIGOXIN [Concomitant]
  6. FUROSEMIDE [Concomitant]
  7. ISOSORBIDE [Concomitant]
  8. SIMVASTATIN [Concomitant]
  9. SOTALOL [Concomitant]
  10. WARFARIN [Concomitant]

REACTIONS (5)
  - Feeling cold [Recovered/Resolved]
  - Tongue disorder [Recovered/Resolved]
  - Balance disorder [Recovered/Resolved]
  - Angioedema [Recovered/Resolved]
  - Hypoaesthesia [Recovered/Resolved]
